FAERS Safety Report 6751447 (Version 2)
Quarter: 2013Q1

REPORT INFORMATION
  Report Type: Spontaneous
  Country: FR (occurrence: None)
  Receive Date: 20080826
  Receipt Date: 20130109
  Transmission Date: 20140127
  Serious: Yes (Hospitalization)
  Sender: FDA-Public Use
  Company Number: 2008AP002050

PATIENT
  Age: 3 Year
  Sex: Female

DRUGS (2)
  1. CARBAMAZEPINE [Suspect]
     Indication: PARTIAL SEIZURES
     Dosage: 100 MG;BID, 80 MG; BID
  2. CLARITHROMYCIN [Suspect]
     Indication: ACUTE SINUSITIS
     Dosage: 150 MG;BID

REACTIONS (6)
  - Inhibitory drug interaction [None]
  - Toxicity to various agents [None]
  - Vomiting [None]
  - Ataxia [None]
  - Acute sinusitis [None]
  - Anticonvulsant drug level above therapeutic [None]
